FAERS Safety Report 6736600-3 (Version None)
Quarter: 2010Q2

REPORT INFORMATION
  Report Type: 
  Country: None (occurrence: None)
  Receive Date: 20100521
  Receipt Date: 20100510
  Transmission Date: 20101027
  Serious: Yes (Death)
  Sender: FDA-Public Use
  Company Number: US-ELI_LILLY_AND_COMPANY-US201005002793

PATIENT
  Sex: Female

DRUGS (4)
  1. EVISTA [Suspect]
     Indication: OSTEOPOROSIS
     Dosage: 60 MG, DAILY (1/D)
     Dates: end: 20100509
  2. VITAMIN D [Concomitant]
  3. CALCIUM                                 /N/A/ [Concomitant]
  4. SPIRIVA [Concomitant]

REACTIONS (1)
  - DEATH [None]
